FAERS Safety Report 7118684-6 (Version None)
Quarter: 2010Q4

REPORT INFORMATION
  Report Type: 
  Country: None (occurrence: None)
  Receive Date: 20101123
  Receipt Date: 20101105
  Transmission Date: 20110411
  Serious: No
  Sender: FDA-Public Use
  Company Number: US-PFIZER INC-2010148454

PATIENT
  Age: 60 Year
  Weight: 88 kg

DRUGS (4)
  1. ADVIL [Suspect]
     Dosage: 1 DF, 2X/DAY
     Route: 048
     Dates: start: 20101101
  2. DILTIAZEM [Concomitant]
  3. ACETYLSALICYLIC ACID [Concomitant]
  4. HYDROCHLOROTHIAZIDE [Concomitant]

REACTIONS (1)
  - DIARRHOEA [None]
